FAERS Safety Report 7260580-8 (Version None)
Quarter: 2011Q1

REPORT INFORMATION
  Report Type: 
  Country: None (occurrence: None)
  Receive Date: 20110130
  Receipt Date: 20101104
  Transmission Date: 20110831
  Serious: No
  Sender: FDA-Public Use
  Company Number: US-ABBOTT-10P-163-0684563-00

PATIENT
  Sex: Male
  Weight: 127.12 kg

DRUGS (6)
  1. HUMIRA [Suspect]
     Indication: PSORIASIS
     Route: 058
     Dates: start: 20090101, end: 20100101
  2. ZOLOFT [Concomitant]
     Indication: DEPRESSION
  3. WELLBUTRIN [Concomitant]
     Indication: DEPRESSION
  4. HUMIRA [Suspect]
     Indication: PSORIATIC ARTHROPATHY
     Route: 058
     Dates: start: 20100101
  5. LISINOPRIL [Concomitant]
     Indication: HYPERTENSION
  6. LEVOTHYROXINE SODIUM [Concomitant]
     Indication: HYPOTHYROIDISM

REACTIONS (1)
  - DRUG INEFFECTIVE [None]
